FAERS Safety Report 5544551-5 (Version None)
Quarter: 2007Q4

REPORT INFORMATION
  Report Type: 
  Country: None (occurrence: None)
  Receive Date: 20071210
  Receipt Date: 20061207
  Transmission Date: 20080405
  Serious: No
  Sender: FDA-Public Use
  Company Number: US-AMGEN-KDL202902

PATIENT
  Sex: Male

DRUGS (3)
  1. ENBREL [Suspect]
     Indication: PSORIATIC ARTHROPATHY
     Route: 058
     Dates: start: 20060801
  2. ENBREL [Suspect]
     Indication: PSORIASIS
  3. SORIATANE [Concomitant]
     Route: 048
     Dates: start: 20060501

REACTIONS (2)
  - ARTHRALGIA [None]
  - PSORIASIS [None]
